FAERS Safety Report 9202154 (Version 3)
Quarter: 2013Q2

REPORT INFORMATION
  Report Type: Spontaneous
  Country: US (occurrence: US)
  Receive Date: 20130401
  Receipt Date: 20130418
  Transmission Date: 20140414
  Serious: Yes (Death, Hospitalization)
  Sender: FDA-Public Use
  Company Number: US-GILEAD-2013-0072565

PATIENT
  Sex: Male

DRUGS (13)
  1. LETAIRIS [Suspect]
     Indication: PULMONARY ARTERIAL HYPERTENSION
     Dosage: 10 MG, QD
     Dates: start: 20111220
  2. VENTAVIS [Concomitant]
  3. WARFARIN [Concomitant]
  4. QVAR [Concomitant]
  5. LASIX                              /00032601/ [Concomitant]
  6. ATROVENT [Concomitant]
  7. FLUTICASONE [Concomitant]
  8. ZOLPIDEM [Concomitant]
  9. SIMVASTATIN [Concomitant]
  10. TAMSULOSIN [Concomitant]
  11. CARISOPRODOL [Concomitant]
  12. HYDROXYUREA [Concomitant]
  13. PROPYLTHIOURACIL [Concomitant]

REACTIONS (2)
  - Sepsis [Fatal]
  - Asthma [Not Recovered/Not Resolved]
